FAERS Safety Report 5305118-7 (Version None)
Quarter: 2007Q2

REPORT INFORMATION
  Report Type: 
  Country: None (occurrence: None)
  Receive Date: 20070417
  Receipt Date: 20070405
  Transmission Date: 20071010
  Serious: Yes (Other)
  Sender: FDA-Public Use
  Company Number: VNL_0506_2007

PATIENT
  Age: 75 Year
  Sex: Male
  Weight: 71.6683 kg

DRUGS (6)
  1. APOKYN [Suspect]
     Indication: PARKINSON'S DISEASE
     Dosage: 0.2 ML SC
     Route: 058
     Dates: start: 20070326, end: 20070101
  2. APOKYN [Suspect]
     Indication: PARKINSON'S DISEASE
     Dosage: 0.3 ML VARIABLE SC
     Route: 058
     Dates: start: 20070101
  3. CARBIDOPA AND LEVODOPA [Concomitant]
  4. LEVOTHYROXINE SODIUM [Concomitant]
  5. TRIMETHOBENZAMIDE [Concomitant]
  6. AZILECT [Concomitant]

REACTIONS (2)
  - BLOOD PRESSURE INCREASED [None]
  - FLUSHING [None]
